FAERS Safety Report 12658878 (Version 1)
Quarter: 2016Q3

REPORT INFORMATION
  Report Type: Report from Study
  Country: DE (occurrence: DE)
  Receive Date: 20160817
  Receipt Date: 20160817
  Transmission Date: 20161109
  Serious: Yes (Death, Other)
  Sender: FDA-Public Use
  Company Number: DE-ROCHE-1813705

PATIENT

DRUGS (5)
  1. COUMADINE [Concomitant]
     Active Substance: WARFARIN SODIUM
     Indication: THROMBOSIS IN DEVICE
  2. HEPARIN [Concomitant]
     Active Substance: HEPARIN SODIUM
     Indication: THROMBOSIS IN DEVICE
     Route: 042
  3. ACETYLSALICYLIC ACID [Concomitant]
     Active Substance: ASPIRIN
     Indication: THROMBOSIS IN DEVICE
     Route: 065
  4. CLOPIDOGREL [Concomitant]
     Active Substance: CLOPIDOGREL BISULFATE
     Indication: THROMBOSIS IN DEVICE
  5. ALTEPLASE [Suspect]
     Active Substance: ALTEPLASE
     Indication: THROMBOSIS IN DEVICE
     Route: 042

REACTIONS (2)
  - Right ventricular failure [Unknown]
  - Sepsis [Fatal]
